FAERS Safety Report 11377930 (Version 2)
Quarter: 2015Q3

REPORT INFORMATION
  Report Type: Spontaneous
  Country: US (occurrence: US)
  Receive Date: 20150811
  Receipt Date: 20150903
  Transmission Date: 20151125
  Serious: No
  Sender: FDA-Public Use
  Company Number: US-ELI_LILLY_AND_COMPANY-US200911005414

PATIENT
  Sex: Female

DRUGS (7)
  1. HUMALOG [Suspect]
     Active Substance: INSULIN LISPRO
     Indication: DIABETES MELLITUS
     Dosage: 8 U, DAILY (1/D)
     Dates: start: 2001
  2. METFORMIN [Concomitant]
     Active Substance: METFORMIN HYDROCHLORIDE
  3. HUMULIN N [Suspect]
     Active Substance: INSULIN HUMAN
     Indication: DIABETES MELLITUS
     Dosage: 16 U, DAILY (1/D)
     Dates: start: 2001
  4. HUMULIN N [Suspect]
     Active Substance: INSULIN HUMAN
  5. HUMULIN R [Suspect]
     Active Substance: INSULIN HUMAN
  6. GLIBENCLAMIDE [Concomitant]
     Active Substance: GLYBURIDE
  7. HUMALOG MIX75/25 [Suspect]
     Active Substance: INSULIN LISPRO
     Indication: DIABETES MELLITUS
     Dosage: 20 U, DAILY (1/D)
     Dates: start: 2001

REACTIONS (7)
  - Visual acuity reduced [Unknown]
  - Drug dispensing error [Recovered/Resolved]
  - Cataract operation complication [Unknown]
  - Wrong drug administered [Recovered/Resolved]
  - Cataract [Unknown]
  - Vision blurred [Unknown]
  - Somnolence [Unknown]

NARRATIVE: CASE EVENT DATE: 2003
